FAERS Safety Report 4461224-0 (Version None)
Quarter: 2004Q3

REPORT INFORMATION
  Report Type: 
  Country: None (occurrence: None)
  Receive Date: 20040928
  Receipt Date: 20040917
  Transmission Date: 20050211
  Serious: Yes (Other)
  Sender: FDA-Public Use
  Company Number: JP-JNJFOC-20040905257

PATIENT
  Age: 42 Year
  Sex: Female

DRUGS (4)
  1. TARIVID [Suspect]
     Indication: CROHN'S DISEASE
     Route: 049
     Dates: start: 20040521, end: 20040622
  2. TARIVID [Suspect]
     Route: 049
     Dates: start: 20040521, end: 20040622
  3. TIBERAL [Suspect]
     Indication: CROHN'S DISEASE
     Route: 049
  4. TIBERAL [Suspect]
     Route: 049

REACTIONS (4)
  - ABORTION SPONTANEOUS [None]
  - BLIGHTED OVUM [None]
  - DRUG EXPOSURE DURING PREGNANCY [None]
  - PREGNANCY [None]
